FAERS Safety Report 16252108 (Version 1)
Quarter: 2019Q2

REPORT INFORMATION
  Report Type: Spontaneous
  Country: US (occurrence: US)
  Receive Date: 20190429
  Receipt Date: 20190429
  Transmission Date: 20190711
  Serious: No
  Sender: FDA-Public Use
  Company Number: US-TETRAPHASE PHARMACEUTICALS, INC.-2018TP000022

PATIENT
  Age: 75 Year
  Sex: Female
  Weight: 63.11 kg

DRUGS (1)
  1. XERAVA [Suspect]
     Active Substance: ERAVACYCLINE DIHYDROCHLORIDE
     Indication: LUNG INFECTION
     Route: 042
     Dates: start: 20181209, end: 20181217

REACTIONS (9)
  - Nausea [Unknown]
  - Chest discomfort [Unknown]
  - Drug ineffective [Unknown]
  - Dyspnoea [Unknown]
  - Asthenia [Unknown]
  - Blood pressure systolic decreased [Unknown]
  - Gait disturbance [Unknown]
  - Dizziness [Unknown]
  - Off label use [Recovered/Resolved]

NARRATIVE: CASE EVENT DATE: 201812
